FAERS Safety Report 5582777-5 (Version None)
Quarter: 2008Q1

REPORT INFORMATION
  Report Type: 
  Country: None (occurrence: None)
  Receive Date: 20080107
  Receipt Date: 20071227
  Transmission Date: 20080703
  Serious: Yes (Hospitalization, Other)
  Sender: FDA-Public Use
  Company Number: US-BRISTOL-MYERS SQUIBB COMPANY-14005300

PATIENT
  Age: 56 Year
  Sex: Male

DRUGS (9)
  1. ERBITUX [Suspect]
     Indication: NEOPLASM MALIGNANT
     Dosage: 800 MG IV LOADING DOSE.LAST DOSE (500MG) ADMINISTERED ON 08-JAN-2007
     Route: 042
     Dates: start: 20061211
  2. LAMICTAL [Concomitant]
  3. LIPITOR [Concomitant]
  4. EFFEXOR [Concomitant]
  5. ATIVAN [Concomitant]
  6. PROTONIX [Concomitant]
  7. LACTULOSE [Concomitant]
  8. FENTANYL [Concomitant]
  9. OXYCODONE HCL [Concomitant]

REACTIONS (4)
  - COMA [None]
  - CONFUSIONAL STATE [None]
  - RESPIRATORY ARREST [None]
  - UNRESPONSIVE TO STIMULI [None]
